FAERS Safety Report 6191468-1 (Version None)
Quarter: 2009Q2

REPORT INFORMATION
  Report Type: 
  Country: None (occurrence: None)
  Receive Date: 20090515
  Receipt Date: 20090506
  Transmission Date: 20091009
  Serious: Yes (Hospitalization, Other)
  Sender: FDA-Public Use
  Company Number: NZ-ELI_LILLY_AND_COMPANY-NZ200905000857

PATIENT
  Sex: Female

DRUGS (5)
  1. ZYPREXA [Suspect]
     Indication: ACUTE PSYCHOSIS
     Dosage: 20 MG, EACH EVENING
     Dates: start: 20090401, end: 20090418
  2. ZYPREXA [Suspect]
     Dosage: 10 MG, EACH EVENING
     Dates: start: 20090419, end: 20090420
  3. ZYPREXA [Suspect]
     Dosage: 20 MG, EACH EVENING
     Dates: start: 20090421, end: 20090401
  4. ZOPLICONE [Concomitant]
     Dosage: 7.5 MG, EACH EVENING
  5. DIAZEPAM [Concomitant]
     Dosage: 10 MG, DAILY (1/D)

REACTIONS (2)
  - DIZZINESS [None]
  - HEPATIC FAILURE [None]
